FAERS Safety Report 16139136 (Version 2)
Quarter: 2019Q2

REPORT INFORMATION
  Report Type: Spontaneous
  Country: US (occurrence: US)
  Receive Date: 20190401
  Receipt Date: 20190426
  Transmission Date: 20190711
  Serious: No
  Sender: FDA-Public Use
  Company Number: PHEH2019US013594

PATIENT
  Sex: Male

DRUGS (2)
  1. IMATINIB MESILATE [Suspect]
     Active Substance: IMATINIB MESYLATE
     Indication: MALIGNANT LYMPHOID NEOPLASM
  2. IMATINIB MESILATE [Suspect]
     Active Substance: IMATINIB MESYLATE
     Indication: EOSINOPHILIA
     Dosage: 400 MG, QD
     Route: 048
     Dates: start: 201903

REACTIONS (2)
  - Arthralgia [Recovered/Resolved]
  - Product dose omission [Unknown]
